FAERS Safety Report 10745124 (Version 1)
Quarter: 2015Q1

REPORT INFORMATION
  Report Type: Spontaneous
  Country: US (occurrence: None)
  Receive Date: 20150120
  Receipt Date: 20150120
  Transmission Date: 20150721
  Serious: No
  Sender: FDA-Public Use
  Company Number: AEGR000902

PATIENT
  Age: 70 Year
  Sex: Female
  Weight: 97.5 kg

DRUGS (12)
  1. CRESTOR [Concomitant]
     Active Substance: ROSUVASTATIN CALCIUM
  2. LOSARTAN/HCT (HYDROCHLOROTHIAZIDE, LOSARTAN POTASSIUM) [Concomitant]
  3. METOPROLOL (METOPROLOL TARTRATE) [Concomitant]
     Active Substance: METOPROLOL TARTRATE
  4. SENNA [Concomitant]
     Active Substance: SENNA LEAF\SENNOSIDES\SENNOSIDES A AND B
  5. TRAMADOL [Concomitant]
     Active Substance: TRAMADOL
  6. PLAVIX (CLOPIDOGREL BISULFATE) [Concomitant]
  7. AMLODIPINE (AMLODIPINE BESILATE) [Concomitant]
  8. GLYBURIDE. [Concomitant]
     Active Substance: GLYBURIDE
  9. ZETIA [Concomitant]
     Active Substance: EZETIMIBE
  10. ASPIRIN (ACETYLSALICYLIC ACID) [Concomitant]
     Active Substance: ASPIRIN
  11. JUXTAPID [Suspect]
     Active Substance: LOMITAPIDE MESYLATE
     Indication: TYPE IIA HYPERLIPIDAEMIA
     Route: 048
     Dates: start: 20140925
  12. VITAMIN D3 [Concomitant]
     Active Substance: CHOLECALCIFEROL

REACTIONS (2)
  - Alopecia [None]
  - Weight decreased [None]

NARRATIVE: CASE EVENT DATE: 201410
